FAERS Safety Report 9786204 (Version 3)
Quarter: 2014Q1

REPORT INFORMATION
  Report Type: Report from Study
  Country: US (occurrence: US)
  Receive Date: 20131227
  Receipt Date: 20140331
  Transmission Date: 20141002
  Serious: Yes (Hospitalization)
  Sender: FDA-Public Use
  Company Number: US-BRISTOL-MYERS SQUIBB COMPANY-19924620

PATIENT
  Age: 55 Year
  Sex: Male
  Weight: 92.3 kg

DRUGS (10)
  1. BLINDED: NIVOLUMAB [Suspect]
     Indication: METASTATIC MALIGNANT MELANOMA
     Dosage: 05DEC2013
     Route: 042
     Dates: start: 20131114
  2. IPILIMUMAB [Suspect]
     Indication: METASTATIC MALIGNANT MELANOMA
     Dosage: 05DEC2013
     Route: 042
     Dates: start: 20131114
  3. BLINDED: PLACEBO [Suspect]
     Indication: METASTATIC MALIGNANT MELANOMA
     Dosage: 05DEC2013
     Route: 042
     Dates: start: 20131114
  4. MULTIVITAMIN [Concomitant]
     Dates: start: 20130726
  5. PANTOPRAZOLE [Concomitant]
     Dates: start: 20130726
  6. VITAMIN D [Concomitant]
     Dates: start: 20130726
  7. AMLODIPINE [Concomitant]
     Dates: start: 20131028
  8. PRAVASTATIN SODIUM [Concomitant]
     Dates: start: 20131018
  9. ASPIRIN [Concomitant]
     Dates: start: 20131030
  10. RIVAROXABAN [Concomitant]
     Dates: start: 20131030

REACTIONS (2)
  - Pyrexia [Recovering/Resolving]
  - Liver function test abnormal [Recovered/Resolved with Sequelae]
